FAERS Safety Report 9166339 (Version 1)
Quarter: 2013Q1

REPORT INFORMATION
  Report Type: Spontaneous
  Country: US (occurrence: US)
  Receive Date: 20130315
  Receipt Date: 20130315
  Transmission Date: 20140127
  Serious: No
  Sender: FDA-Public Use
  Company Number: US-PFIZER INC-2013086578

PATIENT
  Age: 74 Year
  Sex: Female
  Weight: 47.17 kg

DRUGS (3)
  1. AZITHROMYCIN [Suspect]
     Indication: OROPHARYNGEAL PAIN
     Dosage: 10 ML, 1X/DAY
     Dates: start: 20130310
  2. CARAC [Concomitant]
     Indication: BASAL CELL CARCINOMA
     Dosage: UNK
  3. KLONOPIN [Concomitant]
     Indication: ANXIETY
     Dosage: 0.5 MG, 1X/DAY

REACTIONS (1)
  - Fatigue [Not Recovered/Not Resolved]
